FAERS Safety Report 6054886-8 (Version None)
Quarter: 2009Q1

REPORT INFORMATION
  Report Type: 
  Country: None (occurrence: None)
  Receive Date: 20090122
  Receipt Date: 20080414
  Transmission Date: 20090719
  Serious: Yes (Hospitalization)
  Sender: FDA-Public Use
  Company Number: 2009PL000011

PATIENT
  Age: 20 Year
  Sex: Female

DRUGS (9)
  1. AZATHIOPRINE [Suspect]
     Indication: SYSTEMIC LUPUS ERYTHEMATOSUS
     Dosage: 100 MG
     Dates: end: 20020101
  2. PREDNISOLONE [Suspect]
     Indication: SYSTEMIC LUPUS ERYTHEMATOSUS
     Dosage: 40 MG; QD
     Dates: start: 20020101
  3. METHYLPREDNISOLONE 16MG TAB [Suspect]
  4. CYCLOSPORINE [Suspect]
     Dosage: 250 MG
  5. MYCOPHENOLATE MOFETIL [Suspect]
     Dosage: 500 MG; BID
  6. CHLORAMBUCIL (CHLORAMBUCIL) [Suspect]
     Dosage: 4 MG; QD
  7. GANCICLOVIR [Suspect]
  8. PREDNISONE [Concomitant]
  9. CYCLOSPORINE [Concomitant]

REACTIONS (9)
  - ABDOMINAL SEPSIS [None]
  - ANAEMIA HAEMOLYTIC AUTOIMMUNE [None]
  - EPSTEIN-BARR VIRUS INFECTION [None]
  - IMMUNOSUPPRESSION [None]
  - LEIOMYOSARCOMA [None]
  - NEPHROTIC SYNDROME [None]
  - NO THERAPEUTIC RESPONSE [None]
  - PANCYTOPENIA [None]
  - TUMOUR NECROSIS [None]
